FAERS Safety Report 9036447 (Version 1)
Quarter: 2013Q1

REPORT INFORMATION
  Report Type: Spontaneous
  Country: IR (occurrence: None)
  Receive Date: 20130114
  Receipt Date: 20130114
  Transmission Date: 20140127
  Serious: Yes (Death)
  Sender: FDA-Public Use
  Company Number: KAD201301-000022

PATIENT
  Sex: 0

DRUGS (1)
  1. RIBAVIRIN [Suspect]
     Indication: CONGO-CRIMEAN HAEMORRHAGIC FEVER

REACTIONS (1)
  - Cardiac failure congestive [None]
